FAERS Safety Report 21545710 (Version 1)
Quarter: 2022Q4

REPORT INFORMATION
  Report Type: Spontaneous
  Country: US (occurrence: US)
  Receive Date: 20221103
  Receipt Date: 20221103
  Transmission Date: 20230113
  Serious: Yes (Hospitalization, Other)
  Sender: FDA-Public Use
  Company Number: US-SUN PHARMACEUTICAL INDUSTRIES LTD-2022R1-361794

PATIENT
  Age: 68 Year
  Sex: Male

DRUGS (3)
  1. MORPHINE [Suspect]
     Active Substance: MORPHINE
     Indication: Pain
     Dosage: 3.5 MG/ML
     Route: 065
  2. CLONIDINE [Suspect]
     Active Substance: CLONIDINE
     Indication: Pain
     Dosage: 70 MCG/ML
     Route: 065
  3. BUPIVACAINE [Suspect]
     Active Substance: BUPIVACAINE
     Indication: Pain
     Dosage: 2.75MG/ML
     Route: 065

REACTIONS (8)
  - Accidental exposure to product [Unknown]
  - Peripheral sensory neuropathy [Recovered/Resolved]
  - Hypotension [Recovered/Resolved]
  - Bradycardia [Recovered/Resolved]
  - Lethargy [Unknown]
  - Hypokalaemia [Recovered/Resolved]
  - Neurotoxicity [Recovered/Resolved]
  - Cardiotoxicity [Recovered/Resolved]
